FAERS Safety Report 9327323 (Version 1)
Quarter: 2013Q2

REPORT INFORMATION
  Report Type: Spontaneous
  Country: US (occurrence: US)
  Receive Date: 20130604
  Receipt Date: 20130604
  Transmission Date: 20140414
  Serious: No
  Sender: FDA-Public Use
  Company Number: US-AMGEN-USASP2013037530

PATIENT
  Age: 43 Year
  Sex: Female

DRUGS (6)
  1. ENBREL [Suspect]
     Indication: PRODUCT USED FOR UNKNOWN INDICATION
     Dosage: UNK
     Route: 065
  2. NEURONTIN [Concomitant]
     Dosage: 300 UNK, BID
  3. RESTASIS [Concomitant]
     Dosage: UNK UNK, QD
  4. ADVAIR [Concomitant]
     Dosage: UNK UNK, QD
  5. PLAQUENIL                          /00072602/ [Concomitant]
     Dosage: 200 UNK, QD
  6. SYNTHROID [Concomitant]
     Dosage: 125 MUG, QD

REACTIONS (3)
  - Drug ineffective [Unknown]
  - Rash pruritic [Not Recovered/Not Resolved]
  - Urticaria [Unknown]
